FAERS Safety Report 7434247-7 (Version None)
Quarter: 2011Q2

REPORT INFORMATION
  Report Type: 
  Country: None (occurrence: None)
  Receive Date: 20110425
  Receipt Date: 20110420
  Transmission Date: 20111010
  Serious: Yes (Other)
  Sender: FDA-Public Use
  Company Number: US-PFIZER INC-2011087016

PATIENT
  Sex: Female
  Weight: 46.712 kg

DRUGS (9)
  1. CRESTOR [Concomitant]
     Indication: BLOOD CHOLESTEROL INCREASED
     Dosage: 5 MG, 1X/DAY
     Route: 048
  2. SPIRIVA [Concomitant]
     Indication: EMPHYSEMA
  3. PROPRANOLOL [Concomitant]
     Indication: HYPERTENSION
     Dosage: 40 MG, 2X/DAY
     Route: 048
  4. XALATAN [Suspect]
     Indication: INTRAOCULAR PRESSURE INCREASED
     Dosage: 1 GTT, 1X/DAY IN EACH EYE AT NIGHT
     Route: 047
  5. ROPINIROLE [Concomitant]
     Dosage: 0.5 MG, 1X/DAY AT BEDTIME
     Route: 048
  6. XALATAN [Suspect]
     Indication: GLAUCOMA
  7. ROPINIROLE [Concomitant]
     Indication: PAIN IN EXTREMITY
     Dosage: 0.25 MG, 1X/DAY AT BEDTIME
     Route: 048
  8. TRIAMTERENE [Concomitant]
     Indication: HYPERTENSION
     Dosage: 25 MG, 1X/DAY
     Route: 048
  9. SPIRIVA [Concomitant]
     Indication: CHRONIC OBSTRUCTIVE PULMONARY DISEASE
     Dosage: UNK

REACTIONS (1)
  - INTRAOCULAR PRESSURE INCREASED [None]
